FAERS Safety Report 5068680-8 (Version None)
Quarter: 2006Q3

REPORT INFORMATION
  Report Type: 
  Country: None (occurrence: None)
  Receive Date: 20060802
  Receipt Date: 20060210
  Transmission Date: 20061208
  Serious: Yes (Hospitalization)
  Sender: FDA-Public Use
  Company Number: US-BRISTOL-MYERS SQUIBB COMPANY-13278775

PATIENT
  Age: 81 Year
  Sex: Male
  Weight: 98 kg

DRUGS (10)
  1. COUMADIN [Suspect]
     Indication: HYPERTENSION
     Dates: start: 19670101
  2. COUMADIN [Suspect]
     Indication: CEREBROVASCULAR ACCIDENT PROPHYLAXIS
     Dates: start: 19670101
  3. ALLOPURINOL [Concomitant]
  4. LIPITOR [Concomitant]
  5. ZOLOFT [Concomitant]
  6. WELLBUTRIN [Concomitant]
  7. LORAZEPAM [Concomitant]
  8. CATAPRES [Concomitant]
  9. PRILOSEC [Concomitant]
  10. CHEMOTHERAPY [Concomitant]
     Dosage: ONE AGENT ONCE EVERY THREE WEEKS; ANOTHER AGENT THREE CONSECUTIVE DAYS EVERY OTHER WEEK

REACTIONS (2)
  - DEPRESSION [None]
  - HAEMORRHAGE [None]
